FAERS Safety Report 5801662-4 (Version None)
Quarter: 2008Q3

REPORT INFORMATION
  Report Type: 
  Country: None (occurrence: None)
  Receive Date: 20080703
  Receipt Date: 20080703
  Transmission Date: 20090109
  Serious: No
  Sender: FDA-Public Use
  Company Number: None

PATIENT
  Sex: Female
  Weight: 88.4514 kg

DRUGS (2)
  1. PREMARIN [Suspect]
     Indication: HOT FLUSH
     Dosage: 1 PILL DAILY ORAL
     Route: 048
     Dates: start: 20060901, end: 20080601
  2. PREMARIN [Suspect]
     Indication: MENOPAUSE
     Dosage: 1 PILL DAILY ORAL
     Route: 048
     Dates: start: 20060901, end: 20080601

REACTIONS (2)
  - DRUG INEFFECTIVE [None]
  - PHARMACEUTICAL PRODUCT COMPLAINT [None]
